FAERS Safety Report 7999643-8 (Version None)
Quarter: 2011Q4

REPORT INFORMATION
  Report Type: 
  Country: None (occurrence: None)
  Receive Date: 20111221
  Receipt Date: 20111216
  Transmission Date: 20120403
  Serious: Yes (Death)
  Sender: FDA-Public Use
  Company Number: US-ASTRAZENECA-2011SE76903

PATIENT
  Age: 74 Year
  Sex: Female

DRUGS (10)
  1. CLOPIDOGREL [Suspect]
     Route: 048
  2. LEVOTHYROXINE SODIUM [Suspect]
     Route: 048
  3. LISINOPRIL [Suspect]
     Route: 048
  4. BUMETANIDE [Suspect]
     Route: 048
  5. SIMVASTATIN [Suspect]
     Route: 048
  6. POTASSIUM CHLORIDE [Suspect]
     Route: 048
  7. CARVEDILOL [Suspect]
     Route: 048
  8. RISPERIDONE [Suspect]
     Route: 048
  9. TEMAZEPAM [Suspect]
     Route: 048
  10. HYPOCHLORITE [Suspect]
     Route: 048

REACTIONS (2)
  - TOXICITY TO VARIOUS AGENTS [None]
  - COMPLETED SUICIDE [None]
